FAERS Safety Report 6718398-8 (Version None)
Quarter: 2010Q2

REPORT INFORMATION
  Report Type: 
  Country: None (occurrence: None)
  Receive Date: 20100510
  Receipt Date: 20100429
  Transmission Date: 20101027
  Serious: Yes (Disabling)
  Sender: FDA-Public Use
  Company Number: IE-BAXTER-2010BH008552

PATIENT
  Age: 66 Year
  Sex: Female

DRUGS (2)
  1. SODIUM CHLORIDE 0.9% IN PLASTIC CONTAINER [Suspect]
     Indication: TUBERCULOSIS
     Route: 042
     Dates: start: 20091214, end: 20100331
  2. AMIKACIN [Suspect]
     Indication: TUBERCULOSIS
     Route: 042
     Dates: start: 20091130, end: 20100331

REACTIONS (1)
  - DEAFNESS [None]
